FAERS Safety Report 18812246 (Version 1)
Quarter: 2021Q1

REPORT INFORMATION
  Report Type: Spontaneous
  Country: US (occurrence: US)
  Receive Date: 20210130
  Receipt Date: 20210130
  Transmission Date: 20210419
  Serious: Yes (Other)
  Sender: FDA-Public Use
  Company Number: US-MACLEODS PHARMACEUTICALS US LTD-MAC2021029899

PATIENT

DRUGS (4)
  1. LIDOCAINE. [Suspect]
     Active Substance: LIDOCAINE
     Dosage: 2 MILLILITER, SINGLE, 1 %, BOLUS
     Route: 008
  2. SALINE [Concomitant]
     Active Substance: SODIUM CHLORIDE
     Indication: EPIDURAL ANAESTHESIA
     Dosage: 5 MILLILITER, SINGLE, AGITATED SALINE INJECTATE, BOLUS
     Route: 008
  3. EPINEPHRINE. [Concomitant]
     Active Substance: EPINEPHRINE
     Indication: EPIDURAL ANAESTHESIA
     Dosage: UNK, A 3 ML TEST DOSE OF 1.5% LIDOCAINE WITH EPINEPHRINE 1:200,000 WAS RAPIDLY ADMINISTERED.
     Route: 008
  4. LIDOCAINE. [Suspect]
     Active Substance: LIDOCAINE
     Indication: EPIDURAL ANAESTHESIA
     Dosage: 3 MILLILITER, SINGLE, TEST DOSE, 1.5 %
     Route: 008

REACTIONS (4)
  - Maternal exposure during delivery [Recovering/Resolving]
  - Dizziness [Recovering/Resolving]
  - Hypotension [Recovering/Resolving]
  - Nausea [Recovering/Resolving]
